FAERS Safety Report 9759784 (Version 2)
Quarter: 2013Q4

REPORT INFORMATION
  Report Type: Spontaneous
  Country: US (occurrence: US)
  Receive Date: 20131216
  Receipt Date: 20131216
  Transmission Date: 20140711
  Serious: No
  Sender: FDA-Public Use
  Company Number: US-GILEAD-2010-0029054

PATIENT
  Age: 52 Year
  Sex: Female
  Weight: 102.6 kg

DRUGS (8)
  1. LETAIRIS [Suspect]
     Indication: PULMONARY ARTERIAL HYPERTENSION
     Route: 048
     Dates: start: 20080424, end: 20100415
  2. EFFEXOR [Concomitant]
  3. XANAX [Concomitant]
  4. LOPRESSOR [Concomitant]
  5. METFORMIN [Concomitant]
  6. WELLBUTRIN [Concomitant]
  7. PREVACID [Concomitant]
  8. MOBIC [Concomitant]

REACTIONS (1)
  - Liver function test abnormal [Recovering/Resolving]
